FAERS Safety Report 24468437 (Version 2)
Quarter: 2024Q4

REPORT INFORMATION
  Report Type: Spontaneous
  Country: US (occurrence: US)
  Receive Date: 20241018
  Receipt Date: 20241022
  Transmission Date: 20250115
  Serious: No
  Sender: PFIZER
  Company Number: US-PFIZER INC-202400279774

PATIENT
  Sex: Female

DRUGS (2)
  1. INLYTA [Suspect]
     Active Substance: AXITINIB
     Indication: Adenoid cystic carcinoma
     Dosage: 5 MG, 2X/DAY
     Route: 048
  2. BAVENCIO [Concomitant]
     Active Substance: AVELUMAB
     Indication: Adenoid cystic carcinoma

REACTIONS (3)
  - Lymphopenia [Recovered/Resolved]
  - Cough [Recovered/Resolved]
  - Off label use [Unknown]
